FAERS Safety Report 12851759 (Version 2)
Quarter: 2016Q4

REPORT INFORMATION
  Report Type: Spontaneous
  Country: US (occurrence: US)
  Receive Date: 20161017
  Receipt Date: 20161121
  Transmission Date: 20170207
  Serious: No
  Sender: FDA-Public Use
  Company Number: US-JNJFOC-20160914358

PATIENT
  Sex: Male

DRUGS (12)
  1. SIMVASTATIN. [Concomitant]
     Active Substance: SIMVASTATIN
  2. AMRINONE LACTATE [Concomitant]
  3. AMLODIPINE [Concomitant]
     Active Substance: AMLODIPINE BESYLATE
  4. IBUPROFEN. [Concomitant]
     Active Substance: IBUPROFEN
  5. ZETIA [Concomitant]
     Active Substance: EZETIMIBE
  6. CINNAMON. [Concomitant]
     Active Substance: CINNAMON
  7. COENZYME Q10 [Concomitant]
     Active Substance: UBIDECARENONE
  8. IMBRUVICA [Suspect]
     Active Substance: IBRUTINIB
     Indication: CHRONIC LYMPHOCYTIC LEUKAEMIA
     Route: 065
  9. LOSARTAN. [Concomitant]
     Active Substance: LOSARTAN
  10. NIACIN. [Concomitant]
     Active Substance: NIACIN
  11. L ARGININE [Concomitant]
     Active Substance: ARGININE
  12. ASPIRIN. [Concomitant]
     Active Substance: ASPIRIN

REACTIONS (4)
  - Headache [Unknown]
  - Skin ulcer [Recovered/Resolved]
  - Peripheral swelling [Recovered/Resolved]
  - Stomatitis [Unknown]

NARRATIVE: CASE EVENT DATE: 20160818
